FAERS Safety Report 25156827 (Version 3)
Quarter: 2025Q2

REPORT INFORMATION
  Report Type: Report from Study
  Country: US (occurrence: US)
  Receive Date: 20250403
  Receipt Date: 20250429
  Transmission Date: 20250717
  Serious: Yes (Hospitalization, Other)
  Sender: ABBVIE
  Company Number: US-ABBVIE-6202228

PATIENT
  Age: 62 Year
  Sex: Female

DRUGS (3)
  1. RINVOQ [Suspect]
     Active Substance: UPADACITINIB
     Indication: Rheumatoid arthritis
     Dosage: STRENGTH: 15MG, RINVOQ HELD FOR 1 WEEK. END DATE: 2024
     Route: 048
     Dates: start: 202401
  2. RINVOQ [Suspect]
     Active Substance: UPADACITINIB
     Indication: Rheumatoid arthritis
     Dosage: STRENGTH: 15MG
     Route: 048
     Dates: start: 202502
  3. RINVOQ [Suspect]
     Active Substance: UPADACITINIB
     Indication: Rheumatoid arthritis
     Dosage: STRENGTH: 15MG, RINVOQ WAS ON HOLD FOR 2 WEEKS
     Route: 048
     Dates: start: 2024, end: 2024

REACTIONS (18)
  - Knee arthroplasty [Unknown]
  - Syncope [Unknown]
  - Grip strength decreased [Unknown]
  - Knee arthroplasty [Unknown]
  - Peripheral swelling [Recovering/Resolving]
  - Musculoskeletal stiffness [Not Recovered/Not Resolved]
  - Adrenal insufficiency [Recovering/Resolving]
  - Pain [Not Recovered/Not Resolved]
  - Nodule [Recovering/Resolving]
  - Swelling [Recovering/Resolving]
  - Psoriasis [Recovering/Resolving]
  - Insomnia [Unknown]
  - Back pain [Unknown]
  - Fatigue [Unknown]
  - Insomnia [Unknown]
  - Arthralgia [Recovered/Resolved]
  - Pain [Recovered/Resolved]
  - Glucocorticoid deficiency [Unknown]

NARRATIVE: CASE EVENT DATE: 20240101
